FAERS Safety Report 21241743 (Version 2)
Quarter: 2022Q3

REPORT INFORMATION
  Report Type: Spontaneous
  Country: JP (occurrence: JP)
  Receive Date: 20220823
  Receipt Date: 20220930
  Transmission Date: 20221027
  Serious: Yes (Life-Threatening, Hospitalization, Other)
  Sender: FDA-Public Use
  Company Number: JP-ALKEM LABORATORIES LIMITED-JP-ALKEM-2022-08739

PATIENT
  Age: 3 Decade
  Sex: Female
  Weight: 58.5 kg

DRUGS (6)
  1. LACOSAMIDE [Suspect]
     Active Substance: LACOSAMIDE
     Indication: Product used for unknown indication
     Dosage: 328 DOSAGE FORM (328 TABLETS OF 50 MG)
     Route: 065
  2. PERAMPANEL [Suspect]
     Active Substance: PERAMPANEL
     Indication: Product used for unknown indication
     Dosage: 2 MILLIGRAM, (81 TABLETS OF 2 MG PERAMPANEL HYDRATE)
     Route: 065
  3. NEUROTROPIN [Suspect]
     Active Substance: NEUROTROPIN
     Indication: Product used for unknown indication
     Dosage: 54 DOSAGE FORM (54 TABLETS OF 4 UNITS)
     Route: 065
  4. REBAMIPIDE [Suspect]
     Active Substance: REBAMIPIDE
     Indication: Product used for unknown indication
     Dosage: 26 DOSAGE FORM (26 TABLETS OF 100 MG REBAMIPIDE)
     Route: 065
  5. CELECOXIB [Suspect]
     Active Substance: CELECOXIB
     Indication: Product used for unknown indication
     Dosage: 18 DOSAGE FORM (18 TABLETS OF 100 MG CELECOXIB)
     Route: 065
  6. LOXOPROFEN SODIUM [Suspect]
     Active Substance: LOXOPROFEN SODIUM
     Indication: Product used for unknown indication
     Dosage: 2 DOSAGE FORM (2 TABLETS OF 60 MG LOXOPROFEN SODIUM)
     Route: 065

REACTIONS (4)
  - Toxicity to various agents [Recovered/Resolved]
  - Clonic convulsion [Unknown]
  - Depressed level of consciousness [Unknown]
  - Overdose [Unknown]
